FAERS Safety Report 25164058 (Version 1)
Quarter: 2025Q2

REPORT INFORMATION
  Report Type: Spontaneous
  Country: US (occurrence: US)
  Receive Date: 20250405
  Receipt Date: 20250405
  Transmission Date: 20250717
  Serious: Yes (Hospitalization)
  Sender: HETERO
  Company Number: US-HETERO-HET2025US01596

PATIENT
  Age: 51 Year
  Sex: Male

DRUGS (4)
  1. COLCHICINE [Interacting]
     Active Substance: COLCHICINE
     Indication: Pericarditis constrictive
     Route: 065
  2. COLCHICINE [Interacting]
     Active Substance: COLCHICINE
     Indication: Serositis
     Route: 065
  3. TACROLIMUS [Interacting]
     Active Substance: TACROLIMUS
     Indication: Product used for unknown indication
     Route: 065
  4. EVEROLIMUS [Concomitant]
     Active Substance: EVEROLIMUS
     Indication: Liver transplant rejection
     Route: 065

REACTIONS (2)
  - Drug interaction [Unknown]
  - Off label use [Unknown]
